FAERS Safety Report 12665005 (Version 3)
Quarter: 2016Q4

REPORT INFORMATION
  Report Type: Spontaneous
  Country: US (occurrence: US)
  Receive Date: 20160818
  Receipt Date: 20161215
  Transmission Date: 20170207
  Serious: Yes (Death, Hospitalization)
  Sender: FDA-Public Use
  Company Number: US-PFIZER INC-2016384837

PATIENT
  Age: 75 Year
  Sex: Male
  Weight: 61 kg

DRUGS (4)
  1. RAPAMUNE [Suspect]
     Active Substance: SIROLIMUS
     Indication: HEART TRANSPLANT REJECTION
     Dosage: 1 MG, 1X/DAY
     Route: 048
     Dates: start: 20120112, end: 20160729
  2. GENGRAF [Concomitant]
     Active Substance: CYCLOSPORINE
     Indication: IMMUNOSUPPRESSANT DRUG THERAPY
     Dosage: 100 MG, 2X/DAY
     Route: 048
     Dates: end: 20160730
  3. RAPAMUNE [Suspect]
     Active Substance: SIROLIMUS
     Indication: PERIPHERAL ARTERIAL OCCLUSIVE DISEASE
  4. GENGRAF [Concomitant]
     Active Substance: CYCLOSPORINE
     Dosage: 200 MG, DAILY [100 MG X 2]
     Dates: start: 19970607, end: 20160802

REACTIONS (4)
  - Cardiac failure [Fatal]
  - Product use issue [Unknown]
  - Renal failure [Fatal]
  - Peripheral arterial occlusive disease [Fatal]

NARRATIVE: CASE EVENT DATE: 20120112
